FAERS Safety Report 5315652-1 (Version None)
Quarter: 2007Q2

REPORT INFORMATION
  Report Type: 
  Country: None (occurrence: None)
  Receive Date: 20070430
  Receipt Date: 20070430
  Transmission Date: 20071010
  Serious: Yes (Hospitalization)
  Sender: FDA-Public Use
  Company Number: None

PATIENT
  Sex: Female
  Weight: 25.5 kg

DRUGS (2)
  1. CYTARABINE [Suspect]
     Dosage: 7840 MG (980 MG IV Q12 HRS X 4 DAYS)
  2. MYLOTARG [Suspect]
     Dosage: 2.9 MG IV X 1 DOSE

REACTIONS (13)
  - ABDOMINAL TENDERNESS [None]
  - ANTITHROMBIN III DECREASED [None]
  - ASCITES [None]
  - CARDIAC FAILURE CONGESTIVE [None]
  - DISSEMINATED INTRAVASCULAR COAGULATION [None]
  - EJECTION FRACTION DECREASED [None]
  - FLUID OVERLOAD [None]
  - HEPATIC FAILURE [None]
  - HYPOTENSION [None]
  - RENAL FAILURE [None]
  - STREPTOCOCCAL SEPSIS [None]
  - TACHYCARDIA [None]
  - TACHYPNOEA [None]
